FAERS Safety Report 7805066-4 (Version None)
Quarter: 2011Q4

REPORT INFORMATION
  Report Type: 
  Country: None (occurrence: None)
  Receive Date: 20111010
  Receipt Date: 20110928
  Transmission Date: 20120403
  Serious: Yes (Other)
  Sender: FDA-Public Use
  Company Number: KR-GLAXOSMITHKLINE-B0753187A

PATIENT
  Age: 22 Year
  Sex: Female

DRUGS (2)
  1. BUPROPION HYDROCHLORIDE [Suspect]
     Indication: PRODUCT USED FOR UNKNOWN INDICATION
     Dosage: 1500MG SINGLE DOSE
     Route: 065
  2. LORAZEPAM [Suspect]
     Indication: PRODUCT USED FOR UNKNOWN INDICATION
     Dosage: .5MG SINGLE DOSE
     Route: 065

REACTIONS (5)
  - PARANOIA [None]
  - OVERDOSE [None]
  - HALLUCINATION, VISUAL [None]
  - TRANSIENT PSYCHOSIS [None]
  - AGGRESSION [None]
